FAERS Safety Report 5688305-8 (Version None)
Quarter: 2008Q1

REPORT INFORMATION
  Report Type: 
  Country: None (occurrence: None)
  Receive Date: 20080328
  Receipt Date: 20080328
  Transmission Date: 20080703
  Serious: No
  Sender: FDA-Public Use
  Company Number: None

PATIENT
  Age: 17 Year
  Sex: Female
  Weight: 83.9154 kg

DRUGS (1)
  1. SINGULAIR [Suspect]
     Indication: HYPERSENSITIVITY
     Dosage: ONE PILL  ONCE A DAY
     Dates: start: 20080213, end: 20080312

REACTIONS (18)
  - ABNORMAL BEHAVIOUR [None]
  - ANGER [None]
  - ASTHMA [None]
  - DEPRESSED MOOD [None]
  - EAR DISORDER [None]
  - FATIGUE [None]
  - FEELING ABNORMAL [None]
  - HEADACHE [None]
  - MALAISE [None]
  - MENORRHAGIA [None]
  - MOOD ALTERED [None]
  - MUSCLE SPASMS [None]
  - NERVOUSNESS [None]
  - PAIN [None]
  - PHARMACEUTICAL PRODUCT COMPLAINT [None]
  - POLYMENORRHOEA [None]
  - STRESS [None]
  - THINKING ABNORMAL [None]
